FAERS Safety Report 19401281 (Version 1)
Quarter: 2021Q2

REPORT INFORMATION
  Report Type: Spontaneous
  Country: US (occurrence: US)
  Receive Date: 20210610
  Receipt Date: 20210610
  Transmission Date: 20210717
  Serious: Yes (Other)
  Sender: FDA-Public Use
  Company Number: NVSC2021US127131

PATIENT
  Sex: Male

DRUGS (1)
  1. TASIGNA [Suspect]
     Active Substance: NILOTINIB
     Indication: PRODUCT USED FOR UNKNOWN INDICATION
     Dosage: 150 MG
     Route: 048

REACTIONS (8)
  - Loss of consciousness [Unknown]
  - Glycosylated haemoglobin increased [Unknown]
  - Vomiting [Unknown]
  - White blood cell count decreased [Unknown]
  - Diarrhoea [Unknown]
  - Bone pain [Unknown]
  - Nausea [Unknown]
  - Blood glucose increased [Unknown]
